FAERS Safety Report 21137018 (Version 1)
Quarter: 2022Q3

REPORT INFORMATION
  Report Type: Report from Study
  Country: US (occurrence: US)
  Receive Date: 20220727
  Receipt Date: 20220727
  Transmission Date: 20221026
  Serious: Yes (Other)
  Sender: FDA-Public Use
  Company Number: US-ADVANZ PHARMA-202207004534

PATIENT

DRUGS (11)
  1. HYDROXYCHLOROQUINE [Suspect]
     Active Substance: HYDROXYCHLOROQUINE
     Indication: Rheumatoid arthritis
     Dosage: UNK (PLAQUENIL)
     Route: 065
     Dates: start: 202204, end: 2022
  2. HYDROXYCHLOROQUINE [Suspect]
     Active Substance: HYDROXYCHLOROQUINE
     Dosage: UNK (DOSAGE DECREASED)
     Route: 065
     Dates: start: 2022
  3. HUMIRA [Suspect]
     Active Substance: ADALIMUMAB
     Indication: Rheumatoid arthritis
     Dosage: 40 MG (1 IN 2 WEEK)
     Route: 058
     Dates: start: 20211021, end: 202206
  4. HUMIRA [Suspect]
     Active Substance: ADALIMUMAB
     Dosage: 40 MG, WEEKLY (DOSE INCREASED)
     Route: 058
     Dates: start: 202206
  5. MODERNA COVID-19 VACCINE(ELASOMERAN) [Concomitant]
     Indication: COVID-19 immunisation
     Dosage: UNK (1 IN 1 ONCE)
     Route: 030
     Dates: start: 20210331, end: 20210331
  6. MODERNA COVID-19 VACCINE(ELASOMERAN) [Concomitant]
     Dosage: UNK (1 IN 1 ONCE)
     Route: 030
     Dates: start: 20210428, end: 20210428
  7. MODERNA COVID-19 VACCINE(ELASOMERAN) [Concomitant]
     Dosage: UNK (1 IN 1 ONCE)
     Route: 030
     Dates: start: 20210919, end: 20210919
  8. METHOTREXATE [Concomitant]
     Active Substance: METHOTREXATE
     Indication: Rheumatoid arthritis
     Dosage: UNK
  9. PREDNISONE [Concomitant]
     Active Substance: PREDNISONE
     Indication: Rheumatoid arthritis
     Dosage: UNK
  10. HYDROXYCHLOROQUINE [Concomitant]
     Active Substance: HYDROXYCHLOROQUINE
     Indication: Rheumatoid arthritis
     Dosage: UNK
  11. MELOXICAM [Concomitant]
     Active Substance: MELOXICAM
     Indication: Rheumatoid arthritis
     Dosage: UNK

REACTIONS (2)
  - Rheumatoid arthritis [Recovering/Resolving]
  - Migraine [Recovering/Resolving]

NARRATIVE: CASE EVENT DATE: 20220101
